FAERS Safety Report 10528961 (Version 1)
Quarter: 2014Q4

REPORT INFORMATION
  Report Type: Spontaneous
  Country: US (occurrence: None)
  Receive Date: 20141016
  Receipt Date: 20141016
  Transmission Date: 20150528
  Serious: No
  Sender: FDA-Public Use
  Company Number: None

PATIENT
  Age: 74 Year
  Sex: Male

DRUGS (12)
  1. METOLAZONE. [Concomitant]
     Active Substance: METOLAZONE
  2. REVLIMID [Suspect]
     Active Substance: LENALIDOMIDE
     Indication: PLASMA CELL MYELOMA
     Dosage: 15 MG DAILY X21D/28D ORALLY
     Route: 048
     Dates: start: 20140819, end: 20140915
  3. SPIRONOLACTONE. [Concomitant]
     Active Substance: SPIRONOLACTONE
  4. FUROSEMIDE. [Concomitant]
     Active Substance: FUROSEMIDE
  5. DEXAMETHASONE. [Concomitant]
     Active Substance: DEXAMETHASONE
  6. WARFARIN [Concomitant]
     Active Substance: WARFARIN
  7. TERAZOSIN [Concomitant]
     Active Substance: TERAZOSIN\TERAZOSIN HYDROCHLORIDE
  8. ATORVASTATIN [Concomitant]
     Active Substance: ATORVASTATIN
  9. LEVOTHYROXINE [Concomitant]
     Active Substance: LEVOTHYROXINE
  10. REVLIMID [Suspect]
     Active Substance: LENALIDOMIDE
     Indication: PLASMA CELL MYELOMA
     Dosage: 5 MG DAILY X21D/28D ORALLY
     Route: 048
     Dates: start: 20140916, end: 20141013
  11. LOSARTAN [Concomitant]
     Active Substance: LOSARTAN
  12. AMIODARONE [Concomitant]
     Active Substance: AMIODARONE

REACTIONS (2)
  - Rash [None]
  - Pruritus [None]
